FAERS Safety Report 6329071-2 (Version None)
Quarter: 2009Q3

REPORT INFORMATION
  Report Type: 
  Country: None (occurrence: None)
  Receive Date: 20090826
  Receipt Date: 20090820
  Transmission Date: 20100115
  Serious: Yes (Other)
  Sender: FDA-Public Use
  Company Number: PHEH2009US09658

PATIENT
  Sex: Female
  Weight: 75.283 kg

DRUGS (13)
  1. RECLAST [Suspect]
     Dosage: 5 MG, YEARLY
     Route: 042
     Dates: start: 20090701
  2. TOPROL-XL [Concomitant]
  3. NORVASC [Concomitant]
  4. LEVOTHYROXINE SODIUM [Concomitant]
  5. CELEBREX [Concomitant]
  6. PREVACID [Concomitant]
  7. AMBIEN [Concomitant]
  8. XANAX [Concomitant]
  9. LORAZEPAM [Concomitant]
  10. CRESTOR [Concomitant]
  11. XALATAN [Concomitant]
  12. CITRICAL [Concomitant]
  13. OCUVITE                            /01053801/ [Concomitant]

REACTIONS (1)
  - MASS [None]
